FAERS Safety Report 14914713 (Version 5)
Quarter: 2018Q3

REPORT INFORMATION
  Report Type: Report from Study
  Country: JP (occurrence: JP)
  Receive Date: 20180518
  Receipt Date: 20180814
  Transmission Date: 20181010
  Serious: Yes (Hospitalization)
  Sender: FDA-Public Use
  Company Number: JP-ELI_LILLY_AND_COMPANY-JP201805008503

PATIENT
  Age: 65 Year
  Sex: Male
  Weight: 47 kg

DRUGS (10)
  1. CETUXIMAB. [Suspect]
     Active Substance: CETUXIMAB
     Indication: HEAD AND NECK CANCER
     Dosage: 600 MG, SINGLE
     Route: 041
     Dates: start: 20180424, end: 20180424
  2. CISPLATIN. [Concomitant]
     Active Substance: CISPLATIN
     Indication: HEAD AND NECK CANCER
     Dosage: 90 MG, EVERY 3 WEEKS
     Route: 042
     Dates: start: 20180424, end: 20180424
  3. CETUXIMAB. [Suspect]
     Active Substance: CETUXIMAB
     Dosage: 370 MG, WEEKLY (1/W)
     Route: 041
     Dates: start: 20180501
  4. MINOCYCLINE [Concomitant]
     Active Substance: MINOCYCLINE\MINOCYCLINE HYDROCHLORIDE
     Indication: DERMATITIS ACNEIFORM
     Dosage: 100 MG, BID
     Route: 048
  5. DOCETAXEL. [Concomitant]
     Active Substance: DOCETAXEL
     Indication: HEAD AND NECK CANCER
     Dosage: 90 MG, EVERY 3 WEEKS
     Route: 042
     Dates: start: 20180424, end: 20180424
  6. FEXOFENADINE [Concomitant]
     Active Substance: FEXOFENADINE\FEXOFENADINE HYDROCHLORIDE
     Indication: DERMATITIS ACNEIFORM
     Dosage: 60MG AFTER BREAKFAST AND DINNER
     Route: 048
  7. BESOFTEN [Concomitant]
     Active Substance: PENTOSAN POLYSULFATE SODIUM
     Indication: DRY SKIN
     Route: 061
  8. CISPLATIN. [Concomitant]
     Active Substance: CISPLATIN
     Dosage: 65 MG, EVERY 3 WEEKS
     Route: 041
     Dates: start: 20180606
  9. DOCETAXEL. [Concomitant]
     Active Substance: DOCETAXEL
     Dosage: 65 MG, EVERY 3 WEEKS
     Route: 041
     Dates: start: 20180606
  10. MIYA?BM [Concomitant]
     Active Substance: CLOSTRIDIUM BUTYRICUM SPORES STRAIN M-55
     Indication: DYSBACTERIOSIS
     Dosage: 1 TABLET THREE TIMES AFTER MEALS
     Route: 048

REACTIONS (2)
  - Large intestinal haemorrhage [Recovered/Resolved]
  - Colitis [Recovered/Resolved]

NARRATIVE: CASE EVENT DATE: 20180428
